FAERS Safety Report 10817856 (Version 4)
Quarter: 2015Q3

REPORT INFORMATION
  Report Type: Report from Study
  Country: US (occurrence: US)
  Receive Date: 20150218
  Receipt Date: 20150715
  Transmission Date: 20151125
  Serious: Yes (Other)
  Sender: FDA-Public Use
  Company Number: US-BAYER-2014-190612

PATIENT
  Age: 84 Year
  Sex: Male

DRUGS (2)
  1. STIVARGA [Suspect]
     Active Substance: REGORAFENIB
     Indication: SOFT TISSUE SARCOMA
     Dosage: 120 MG, (3 X 40 MG) QD
     Route: 048
     Dates: start: 20140219
  2. AZITHROMYCIN [Interacting]
     Active Substance: AZITHROMYCIN ANHYDROUS

REACTIONS (9)
  - Infection [None]
  - Influenza [None]
  - Neuropathy peripheral [None]
  - Diarrhoea [Not Recovered/Not Resolved]
  - Drug interaction [None]
  - Skin irritation [None]
  - Viral infection [None]
  - Weight decreased [None]
  - Pruritus [None]
